FAERS Safety Report 5135570-1 (Version None)
Quarter: 2006Q4

REPORT INFORMATION
  Report Type: 
  Country: None (occurrence: None)
  Receive Date: 20061026
  Receipt Date: 20060830
  Transmission Date: 20070319
  Serious: Yes (Other)
  Sender: FDA-Public Use
  Company Number: US-AMGEN-KDL191790

PATIENT
  Sex: Female

DRUGS (4)
  1. ARANESP [Suspect]
     Indication: ANAEMIA
     Dates: start: 20060101, end: 20060101
  2. FOSAMAX [Concomitant]
  3. FORTEO [Concomitant]
  4. ZOMETA [Concomitant]

REACTIONS (4)
  - HAEMATOCRIT DECREASED [None]
  - OSTEOMYELITIS [None]
  - THERAPEUTIC RESPONSE DELAYED [None]
  - TOOTH ABSCESS [None]
